FAERS Safety Report 4902698-8 (Version None)
Quarter: 2006Q1

REPORT INFORMATION
  Report Type: 
  Country: None (occurrence: None)
  Receive Date: 20060207
  Receipt Date: 20060126
  Transmission Date: 20060701
  Serious: Yes (Other)
  Sender: FDA-Public Use
  Company Number: US-ROCHE-434095

PATIENT
  Age: 48 Year
  Sex: Female

DRUGS (7)
  1. PEGASYS [Suspect]
     Dosage: 180 MCG QW. ROUTE REPORTED AS INJ.
     Route: 050
     Dates: start: 20050623
  2. COPEGUS [Suspect]
     Route: 048
     Dates: start: 20050623
  3. ATENOLOL [Concomitant]
     Indication: HYPERTENSION
  4. PREVACID [Concomitant]
  5. PAXIL [Concomitant]
     Indication: DEPRESSION
  6. ZYBAN [Concomitant]
  7. BENADRYL [Concomitant]

REACTIONS (7)
  - ANAEMIA [None]
  - BLOOD CALCIUM DECREASED [None]
  - BLOOD PARATHYROID HORMONE INCREASED [None]
  - DILATATION VENTRICULAR [None]
  - HEADACHE [None]
  - RASH [None]
  - THYROID DISORDER [None]
